FAERS Safety Report 11806696 (Version 2)
Quarter: 2016Q3

REPORT INFORMATION
  Report Type: Spontaneous
  Country: US (occurrence: US)
  Receive Date: 20151207
  Receipt Date: 20160831
  Transmission Date: 20161109
  Serious: No
  Sender: FDA-Public Use
  Company Number: US-GLAXOSMITHKLINE-US2015GSK172266

PATIENT
  Age: 54 Year
  Sex: Male

DRUGS (1)
  1. TANZEUM [Suspect]
     Active Substance: ALBIGLUTIDE
     Indication: TYPE 2 DIABETES MELLITUS
     Dosage: 50 MG, WE
     Route: 042
     Dates: start: 201506

REACTIONS (8)
  - Device use error [Unknown]
  - Device leakage [Unknown]
  - Drug ineffective [Unknown]
  - Product preparation error [Unknown]
  - Blood glucose fluctuation [Recovered/Resolved]
  - Accidental exposure to product [Unknown]
  - Device issue [Unknown]
  - Weight fluctuation [Not Recovered/Not Resolved]

NARRATIVE: CASE EVENT DATE: 20160329
